FAERS Safety Report 23094356 (Version 1)
Quarter: 2023Q4

REPORT INFORMATION
  Report Type: Spontaneous
  Country: US (occurrence: US)
  Receive Date: 20231023
  Receipt Date: 20231023
  Transmission Date: 20240109
  Serious: Yes (Death)
  Sender: FDA-Public Use
  Company Number: US-GSK-US2023145215

PATIENT

DRUGS (1)
  1. TRELEGY ELLIPTA [Suspect]
     Active Substance: FLUTICASONE FUROATE\UMECLIDINIUM BROMIDE\VILANTEROL TRIFENATATE
     Indication: Chronic obstructive pulmonary disease
     Dosage: UNK 200/62.5/25MCG INH 30
     Dates: start: 20230323, end: 20231015

REACTIONS (3)
  - Lung disorder [Fatal]
  - Cardiac disorder [Fatal]
  - Product use issue [Unknown]
